FAERS Safety Report 5418026-8 (Version None)
Quarter: 2007Q3

REPORT INFORMATION
  Report Type: 
  Country: None (occurrence: None)
  Receive Date: 20070817
  Receipt Date: 20070117
  Transmission Date: 20080115
  Serious: No
  Sender: FDA-Public Use
  Company Number: A0635977A

PATIENT
  Age: 82 Year
  Sex: Female

DRUGS (5)
  1. BEXXAR [Suspect]
     Indication: NON-HODGKIN'S LYMPHOMA
     Route: 042
     Dates: start: 20061109, end: 20061109
  2. BLOOD PRESSURE MEDICATION [Concomitant]
  3. EVISTA [Concomitant]
  4. LEVOTHYROXINE SODIUM [Concomitant]
  5. MULTIVITAMIN [Concomitant]

REACTIONS (1)
  - DRUG INEFFECTIVE [None]
